FAERS Safety Report 9563017 (Version 2)
Quarter: 2013Q4

REPORT INFORMATION
  Report Type: Spontaneous
  Country: US (occurrence: US)
  Receive Date: 20130927
  Receipt Date: 20131002
  Transmission Date: 20140711
  Serious: No
  Sender: FDA-Public Use
  Company Number: US-009507513-1309USA012975

PATIENT
  Age: 17 Year
  Sex: 0

DRUGS (1)
  1. CLARITIN LIQUIGELS [Suspect]
     Indication: HYPERSENSITIVITY
     Dosage: 10 MG, Q12H
     Route: 048
     Dates: start: 20130915

REACTIONS (1)
  - Overdose [Recovering/Resolving]
